FAERS Safety Report 10009985 (Version 1)
Quarter: 2014Q1

REPORT INFORMATION
  Report Type: Spontaneous
  Country: US (occurrence: US)
  Receive Date: 20140312
  Receipt Date: 20140312
  Transmission Date: 20141002
  Serious: No
  Sender: FDA-Public Use
  Company Number: US-INCYTE CORPORATION-2013IN000491

PATIENT
  Sex: Female

DRUGS (2)
  1. JAKAFI [Suspect]
     Indication: ESSENTIAL THROMBOCYTHAEMIA
     Dosage: 15 MG, BID
     Route: 048
     Dates: start: 20120831
  2. JAKAFI [Suspect]
     Dosage: NOT SPECIFIED (LOWER DOSE)
     Route: 048

REACTIONS (3)
  - Anxiety [Unknown]
  - Hypertension [Unknown]
  - Joint injury [Unknown]
